FAERS Safety Report 8512952-9 (Version None)
Quarter: 2012Q3

REPORT INFORMATION
  Report Type: 
  Country: None (occurrence: None)
  Receive Date: 20120705
  Receipt Date: 20120621
  Transmission Date: 20120928
  Serious: Yes (Hospitalization, Other)
  Sender: FDA-Public Use
  Company Number: 2012P1045384

PATIENT
  Age: 87 Year
  Sex: Female

DRUGS (7)
  1. DIGOXIN [Suspect]
     Indication: ATRIAL FIBRILLATION
     Dosage: 0.125 MG;QD;PO
     Route: 048
     Dates: start: 20070613, end: 20120613
  2. FUROSEMIDE [Concomitant]
  3. METFORMIN HCL [Concomitant]
  4. LORAZEPAM [Concomitant]
  5. TIOTROPIUM [Concomitant]
  6. FLUTICASONE PROPIONATE/SALMETEROL [Concomitant]
  7. WARFARIN SODIUM [Concomitant]

REACTIONS (4)
  - CARDIOACTIVE DRUG LEVEL ABOVE THERAPEUTIC [None]
  - TOXICITY TO VARIOUS AGENTS [None]
  - LEFT VENTRICULAR FAILURE [None]
  - ELECTROCARDIOGRAM REPOLARISATION ABNORMALITY [None]
